FAERS Safety Report 9260693 (Version 2)
Quarter: 2013Q2

REPORT INFORMATION
  Report Type: Report from Study
  Country: JP (occurrence: JP)
  Receive Date: 20130429
  Receipt Date: 20130604
  Transmission Date: 20140414
  Serious: Yes (Hospitalization)
  Sender: FDA-Public Use
  Company Number: JP-PFIZER INC-2013127335

PATIENT
  Age: 55 Year
  Sex: Male
  Weight: 75.5 kg

DRUGS (9)
  1. XALKORI [Suspect]
     Indication: NON-SMALL CELL LUNG CANCER
     Dosage: 250 MG, 2X/DAY
     Route: 048
     Dates: start: 20121126, end: 20130110
  2. XALKORI [Suspect]
     Dosage: 250 MG, 1X/DAY
     Route: 048
     Dates: start: 20130111, end: 20130130
  3. XALKORI [Suspect]
     Dosage: 200 MG, 2X/DAY
     Route: 048
     Dates: start: 20130131, end: 20130228
  4. XALKORI [Suspect]
     Dosage: 250 MG, 2X/DAY
     Route: 048
     Dates: start: 20130301, end: 20130328
  5. MICARDIS [Concomitant]
     Dosage: 20 MG, 1X/DAY
     Route: 048
  6. NEXIUM [Concomitant]
     Dosage: 20 MG, 1X/DAY
     Route: 048
  7. BASEN [Concomitant]
     Dosage: 0.3 MG, 3X/DAY
     Route: 048
  8. AMARYL [Concomitant]
     Dosage: 1 MG, 2X/DAY
     Route: 048
  9. PRIMPERAN [Concomitant]
     Dosage: 5 MG, 3X/DAY
     Route: 048
     Dates: start: 20121126

REACTIONS (1)
  - Interstitial lung disease [Recovering/Resolving]
